FAERS Safety Report 11518073 (Version 1)
Quarter: 2015Q3

REPORT INFORMATION
  Report Type: Spontaneous
  Country: US (occurrence: US)
  Receive Date: 20150917
  Receipt Date: 20150917
  Transmission Date: 20151125
  Serious: No
  Sender: FDA-Public Use
  Company Number: US-GALDERMA-US15005845

PATIENT
  Age: 38 Year
  Sex: Male

DRUGS (1)
  1. MIRVASO [Suspect]
     Active Substance: BRIMONIDINE TARTRATE
     Indication: ROSACEA
     Dosage: 0.33%
     Route: 061
     Dates: start: 201507

REACTIONS (4)
  - Rash macular [Unknown]
  - Rebound effect [Unknown]
  - Pallor [Unknown]
  - Rosacea [Unknown]

NARRATIVE: CASE EVENT DATE: 2015
